FAERS Safety Report 16713497 (Version 4)
Quarter: 2019Q3

REPORT INFORMATION
  Report Type: Spontaneous
  Country: US (occurrence: US)
  Receive Date: 20190819
  Receipt Date: 20190925
  Transmission Date: 20191004
  Serious: Yes (Other)
  Sender: FDA-Public Use
  Company Number: US-AUROBINDO-AUR-APL-2019-054248

PATIENT
  Age: 93 Year
  Sex: Female
  Weight: 71.67 kg

DRUGS (5)
  1. POTASSIUM [Concomitant]
     Active Substance: POTASSIUM
     Indication: PRODUCT USED FOR UNKNOWN INDICATION
     Dosage: 99 MILLIGRAM
     Route: 065
  2. METOPROLOL. [Suspect]
     Active Substance: METOPROLOL
     Indication: ATRIAL FIBRILLATION
     Dosage: 25 MILLIGRAM, TWO TIMES A DAY
     Route: 048
  3. ZOLOFT [Suspect]
     Active Substance: SERTRALINE HYDROCHLORIDE
     Indication: DEPRESSION
     Dosage: 25 MILLIGRAM, ONCE A DAY, AT NIGHT
     Route: 065
     Dates: start: 20190722
  4. ARMOUR THYROID [Concomitant]
     Active Substance: THYROID, PORCINE
     Indication: HYPERTHYROIDISM
     Dosage: 90 MILLIGRAM, ONCE A DAY
     Route: 048
  5. AMIODARONE HYDROCHLORIDE 200 MG TABLET [Suspect]
     Active Substance: AMIODARONE HYDROCHLORIDE
     Indication: ATRIAL FIBRILLATION
     Dosage: 200 MILLIGRAM, ONCE A DAY
     Route: 048

REACTIONS (5)
  - Thrombosis [Unknown]
  - Atrial fibrillation [Unknown]
  - Heart rate abnormal [Unknown]
  - Asthenia [Unknown]
  - Depression [Unknown]
